FAERS Safety Report 9240033 (Version 5)
Quarter: 2013Q2

REPORT INFORMATION
  Report Type: Report from Study
  Country: DE (occurrence: DE)
  Receive Date: 20130418
  Receipt Date: 20130621
  Transmission Date: 20140414
  Serious: Yes (Death)
  Sender: FDA-Public Use
  Company Number: DE-ROCHE-1215859

PATIENT
  Age: 73 Year
  Sex: Female
  Weight: 72 kg

DRUGS (16)
  1. TOCILIZUMAB [Suspect]
     Indication: RHEUMATOID ARTHRITIS
     Dosage: ON 21 NOV 2012, 10 JAN 2013 AND 06 FEB 2013, THE THE PATIENT RECEIVED  TOCILIZUMAB 560 MG.
     Route: 042
     Dates: start: 20111116
  2. VIGANTOLETTEN [Concomitant]
     Route: 065
     Dates: start: 201102
  3. SYMBICORT [Concomitant]
     Indication: CHRONIC OBSTRUCTIVE PULMONARY DISEASE
  4. SPIRIVA [Concomitant]
     Indication: CHRONIC OBSTRUCTIVE PULMONARY DISEASE
  5. VIANI [Concomitant]
     Indication: CHRONIC OBSTRUCTIVE PULMONARY DISEASE
  6. FOLINIC ACID [Concomitant]
  7. NEXIUM [Concomitant]
     Route: 065
  8. ASS [Concomitant]
     Route: 065
  9. ACC [Concomitant]
     Route: 065
  10. GABAPENTIN [Concomitant]
     Route: 065
  11. TORASEMIDE [Concomitant]
     Route: 065
  12. INSULIN [Concomitant]
     Indication: DIABETES MELLITUS
  13. METFORMIN [Concomitant]
     Indication: DIABETES MELLITUS
     Route: 065
  14. FENTANYL [Concomitant]
     Route: 065
     Dates: start: 201206
  15. SIOFOR [Concomitant]
     Indication: DIABETES MELLITUS
     Route: 065
  16. METHOTREXATE [Concomitant]
     Route: 065
     Dates: start: 201005

REACTIONS (5)
  - Carotid artery stenosis [Fatal]
  - Peripheral artery thrombosis [Fatal]
  - Embolism [Fatal]
  - Acute abdomen [Fatal]
  - Haemorrhagic diathesis [Fatal]
